FAERS Safety Report 14892676 (Version 1)
Quarter: 2018Q2

REPORT INFORMATION
  Report Type: Spontaneous
  Country: US (occurrence: US)
  Receive Date: 20180426
  Receipt Date: 20180426
  Transmission Date: 20180711
  Serious: No
  Sender: FDA-Public Use
  Company Number: None

PATIENT
  Age: 43 Year
  Sex: Female

DRUGS (1)
  1. IMATINIB MESYLATE 400 MG TEVA [Suspect]
     Active Substance: IMATINIB MESYLATE
     Indication: CHRONIC MYELOID LEUKAEMIA
     Route: 048
     Dates: start: 20180327, end: 20180420

REACTIONS (4)
  - Hypersensitivity [None]
  - Arthralgia [None]
  - Diarrhoea [None]
  - Face oedema [None]

NARRATIVE: CASE EVENT DATE: 20180327
